FAERS Safety Report 16076897 (Version 1)
Quarter: 2019Q2

REPORT INFORMATION
  Report Type: Spontaneous
  Country: US (occurrence: US)
  Receive Date: 20190314
  Receipt Date: 20190314
  Transmission Date: 20190711
  Serious: Yes (Other)
  Sender: FDA-Public Use
  Company Number: None

PATIENT
  Age: 62 Year
  Sex: Male
  Weight: 81 kg

DRUGS (1)
  1. LIPITOR [Suspect]
     Active Substance: ATORVASTATIN CALCIUM
     Indication: BLOOD CHOLESTEROL
     Dates: start: 20190227, end: 20190301

REACTIONS (4)
  - Liver function test increased [None]
  - Biopsy liver [None]
  - Biopsy bladder [None]
  - Discomfort [None]

NARRATIVE: CASE EVENT DATE: 20190307
